FAERS Safety Report 8918041 (Version 2)
Quarter: 2012Q4

REPORT INFORMATION
  Report Type: 
  Country: US (occurrence: US)
  Receive Date: 20121120
  Receipt Date: 20121129
  Transmission Date: 20130627
  Serious: Yes (Hospitalization, Other)
  Sender: FDA-Public Use
  Company Number: US-BAXTER-2012BAX023971

PATIENT
  Sex: Female

DRUGS (1)
  1. DIANEAL LOW CALCIUM [Suspect]
     Indication: PERITONEAL DIALYSIS
     Route: 033

REACTIONS (6)
  - Syncope [Recovering/Resolving]
  - Back pain [Recovering/Resolving]
  - Adverse drug reaction [Recovering/Resolving]
  - Fall [Recovering/Resolving]
  - Blood sodium decreased [Recovering/Resolving]
  - Hypotension [Recovering/Resolving]
